FAERS Safety Report 4354495-2 (Version None)
Quarter: 2004Q2

REPORT INFORMATION
  Report Type: 
  Country: None (occurrence: None)
  Receive Date: 20040503
  Receipt Date: 20040421
  Transmission Date: 20050107
  Serious: Yes (Hospitalization, Other)
  Sender: FDA-Public Use
  Company Number: US-JNJFOC-200404764

PATIENT
  Age: 51 Year
  Sex: Female
  Weight: 61.2356 kg

DRUGS (9)
  1. REMICADE [Suspect]
     Indication: RHEUMATOID ARTHRITIS
     Dosage: INTRAVENOUS
     Route: 042
     Dates: start: 20000101, end: 20000901
  2. PREDNISONE [Concomitant]
  3. PREVACID [Concomitant]
  4. FOSAMAX [Concomitant]
  5. CALCIUM WITH D (CALCIUM WITH VITAMIN D) [Concomitant]
  6. PREMARIN [Concomitant]
  7. MULTIVITAMIN (MULTIVITAMINS) [Concomitant]
  8. PLAQUENIL [Concomitant]
  9. METHOTREXATE [Concomitant]

REACTIONS (4)
  - CENTRAL NERVOUS SYSTEM LYMPHOMA [None]
  - HAEMANGIOBLASTOMA [None]
  - HYPOAESTHESIA [None]
  - LYMPHOMA [None]
